FAERS Safety Report 10270152 (Version 2)
Quarter: 2014Q3

REPORT INFORMATION
  Report Type: Spontaneous
  Country: JP (occurrence: None)
  Receive Date: 20140625
  Receipt Date: 20140707
  Transmission Date: 20150326
  Serious: Yes (Death, Other)
  Sender: FDA-Public Use
  Company Number: 2014-19777

PATIENT
  Age: 77 Year
  Sex: Female

DRUGS (7)
  1. POTASSIUM MAGNESIUM ASPARTATE [Concomitant]
  2. BRIMONIDINE TARTRATE. [Concomitant]
     Active Substance: BRIMONIDINE TARTRATE
  3. ALCON AZARGA (BRINZOLAMIDE, TIMOLOL MALEATE) [Concomitant]
  4. EYLEA [Suspect]
     Active Substance: AFLIBERCEPT
     Indication: RETINAL VEIN OCCLUSION
     Route: 031
     Dates: start: 20140430, end: 20140430
  5. LUMIGAN (BIMATOPROST) [Concomitant]
  6. DIAMOX /00016901/ (ACETAZOLAMIDE) [Concomitant]
  7. EYLEA [Suspect]
     Active Substance: AFLIBERCEPT
     Indication: MACULAR OEDEMA
     Route: 031
     Dates: start: 20140430, end: 20140430

REACTIONS (1)
  - Death [None]

NARRATIVE: CASE EVENT DATE: 20140608
